FAERS Safety Report 5909600-0 (Version None)
Quarter: 2008Q4

REPORT INFORMATION
  Report Type: 
  Country: None (occurrence: None)
  Receive Date: 20081002
  Receipt Date: 20080922
  Transmission Date: 20090506
  Serious: Yes (Hospitalization)
  Sender: FDA-Public Use
  Company Number: MSTRO-N0-0804S-0015

PATIENT
  Age: 63 Year
  Sex: Male
  Weight: 53.3 kg

DRUGS (6)
  1. METASTRON [Suspect]
     Indication: METASTATIC PAIN
     Dosage: 3.8 ML, SINGLE DOSE, I.V.
     Route: 042
     Dates: start: 20080205, end: 20080205
  2. OXYCODONE HCL [Concomitant]
  3. LOXOPROFEN SODIUM [Concomitant]
  4. LOXOPROFEN SODIUM [Concomitant]
  5. DICLOFENAC SODIUM [Concomitant]
  6. MORPHINE HCL ELIXIR [Concomitant]

REACTIONS (3)
  - ANAEMIA [None]
  - THROMBOCYTOPENIA [None]
  - WHITE BLOOD CELL COUNT DECREASED [None]
